FAERS Safety Report 23263735 (Version 3)
Quarter: 2024Q1

REPORT INFORMATION
  Report Type: Spontaneous
  Country: IL (occurrence: IL)
  Receive Date: 20231205
  Receipt Date: 20240125
  Transmission Date: 20240410
  Serious: Yes (Other)
  Sender: FDA-Public Use
  Company Number: IL-PFIZER INC-PV202300195011

PATIENT
  Age: 10 Year
  Sex: Female

DRUGS (2)
  1. SOMATROPIN [Suspect]
     Active Substance: SOMATROPIN
     Dosage: GQ 12, DAILY
     Route: 058
     Dates: end: 20231125
  2. SOMATROPIN [Suspect]
     Active Substance: SOMATROPIN
     Dosage: UNK, DAILY
     Route: 058

REACTIONS (4)
  - Loss of consciousness [Unknown]
  - Anxiety [Unknown]
  - Fear of injection [Unknown]
  - Injection site pain [Unknown]
